FAERS Safety Report 8848046 (Version 2)
Quarter: 2013Q3

REPORT INFORMATION
  Report Type: Spontaneous
  Country: BR (occurrence: BR)
  Receive Date: 20121018
  Receipt Date: 20130722
  Transmission Date: 20140515
  Serious: No
  Sender: FDA-Public Use
  Company Number: BR-ROCHE-1146537

PATIENT
  Sex: Female

DRUGS (1)
  1. ROACUTAN [Suspect]
     Indication: ACNE
     Dosage: 3 TABLETS PER DAY BEFORE MEALS
     Route: 065
     Dates: start: 201109, end: 201111

REACTIONS (2)
  - Blood cholesterol increased [Unknown]
  - Pregnancy [Unknown]
